FAERS Safety Report 5782225-6 (Version None)
Quarter: 2008Q2

REPORT INFORMATION
  Report Type: 
  Country: None (occurrence: None)
  Receive Date: 20080623
  Receipt Date: 20080424
  Transmission Date: 20081010
  Serious: No
  Sender: FDA-Public Use
  Company Number: US-ABBOTT-08P-163-0449191-00

PATIENT
  Age: 4 Year
  Sex: Female

DRUGS (2)
  1. ULTANE [Suspect]
     Indication: SURGERY
     Dosage: MASK INDUCTION
     Route: 055
     Dates: start: 20080301, end: 20080301
  2. OXYGEN [Concomitant]
     Indication: SURGERY
     Dosage: HIGH FLOW
     Dates: start: 20080424, end: 20080424

REACTIONS (1)
  - CONVULSION [None]
